FAERS Safety Report 13851834 (Version 2)
Quarter: 2017Q3

REPORT INFORMATION
  Report Type: Spontaneous
  Country: US (occurrence: US)
  Receive Date: 20170810
  Receipt Date: 20170825
  Transmission Date: 20171127
  Serious: Yes (Death)
  Sender: FDA-Public Use
  Company Number: US-ZYDUS-015983

PATIENT
  Age: 75 Year
  Sex: Male

DRUGS (2)
  1. AMIODARONE/AMIODARONE HYDROCHLORIDE [Suspect]
     Active Substance: AMIODARONE HYDROCHLORIDE
     Indication: ATRIAL FIBRILLATION
     Route: 048
     Dates: start: 20160324
  2. AMIODARONE [Suspect]
     Active Substance: AMIODARONE
     Indication: ATRIAL FIBRILLATION
     Route: 048
     Dates: start: 201603, end: 20170726

REACTIONS (5)
  - Pulmonary embolism [Fatal]
  - Cough [Unknown]
  - Toxicity to various agents [Fatal]
  - Product use in unapproved indication [Unknown]
  - Dyspnoea [Unknown]
